FAERS Safety Report 6826208-3 (Version None)
Quarter: 2010Q3

REPORT INFORMATION
  Report Type: 
  Country: None (occurrence: None)
  Receive Date: 20100709
  Receipt Date: 20100629
  Transmission Date: 20110219
  Serious: Yes (Other)
  Sender: FDA-Public Use
  Company Number: ES-ABBOTT-10P-144-0654102-00

PATIENT
  Age: 36 Year
  Sex: Female

DRUGS (3)
  1. HUMIRA [Suspect]
     Indication: RHEUMATOID ARTHRITIS
     Dates: start: 20080827
  2. NATECAL D [Concomitant]
     Indication: OSTEOPOROSIS PROPHYLAXIS
     Dates: start: 20070823
  3. ACFOL [Concomitant]
     Indication: PRODUCT USED FOR UNKNOWN INDICATION
     Dates: start: 20070823

REACTIONS (4)
  - INFLUENZA [None]
  - MALIGNANT MELANOMA [None]
  - SEBORRHOEIC DERMATITIS [None]
  - TONSILLITIS [None]
